FAERS Safety Report 6218396-7 (Version None)
Quarter: 2009Q2

REPORT INFORMATION
  Report Type: 
  Country: None (occurrence: None)
  Receive Date: 20090608
  Receipt Date: 20090526
  Transmission Date: 20091009
  Serious: Yes (Hospitalization)
  Sender: FDA-Public Use
  Company Number: A0788936A

PATIENT
  Age: 50 Year
  Sex: Male

DRUGS (3)
  1. AVANDIA [Suspect]
     Indication: DIABETES MELLITUS
     Dosage: 8MG PER DAY
     Route: 048
     Dates: start: 20050211, end: 20060417
  2. AVANDAMET [Suspect]
     Route: 048
     Dates: start: 20050211, end: 20060417
  3. AVANDARYL [Suspect]
     Route: 048
     Dates: start: 20060217, end: 20070213

REACTIONS (1)
  - MYOCARDIAL INFARCTION [None]
